FAERS Safety Report 12081450 (Version 2)
Quarter: 2016Q2

REPORT INFORMATION
  Report Type: Spontaneous
  Country: US (occurrence: US)
  Receive Date: 20160216
  Receipt Date: 20160502
  Transmission Date: 20160815
  Serious: Yes (Death, Other)
  Sender: FDA-Public Use
  Company Number: PHEH2016US003667

PATIENT
  Age: 4 Year
  Sex: Female

DRUGS (2)
  1. MEKINIST [Suspect]
     Active Substance: TRAMETINIB DIMETHYL SULFOXIDE
     Indication: GLIOBLASTOMA
     Dosage: 0.5 MG, QD
     Route: 048
     Dates: start: 20150915, end: 20151105
  2. AVASTIN [Concomitant]
     Active Substance: BEVACIZUMAB
     Indication: GLIOBLASTOMA
     Dosage: 10 MG/KG, Q2MO
     Route: 042
     Dates: start: 20150929, end: 20151105

REACTIONS (4)
  - Cerebral haemorrhage [Unknown]
  - Malignant neoplasm progression [Fatal]
  - Brain herniation [Unknown]
  - Product use issue [Unknown]

NARRATIVE: CASE EVENT DATE: 201511
